FAERS Safety Report 20006733 (Version 1)
Quarter: 2021Q4

REPORT INFORMATION
  Report Type: Spontaneous
  Country: SA (occurrence: SA)
  Receive Date: 20211028
  Receipt Date: 20211028
  Transmission Date: 20220303
  Serious: Yes (Death, Other)
  Sender: FDA-Public Use
  Company Number: SA-BIOVITRUM-2021SA9556

PATIENT
  Age: 3 Month

DRUGS (1)
  1. NITISINONE [Suspect]
     Active Substance: NITISINONE
     Indication: Tyrosinaemia
     Route: 048

REACTIONS (2)
  - Hepatic failure [Fatal]
  - Coagulation time prolonged [Fatal]
